FAERS Safety Report 7048444-6 (Version None)
Quarter: 2010Q4

REPORT INFORMATION
  Report Type: 
  Country: None (occurrence: None)
  Receive Date: 20101015
  Receipt Date: 20101015
  Transmission Date: 20110411
  Serious: No
  Sender: FDA-Public Use
  Company Number: None

PATIENT
  Sex: Female
  Weight: 76.2043 kg

DRUGS (2)
  1. COZAAR [Suspect]
     Indication: HYPERTENSION
     Dosage: 50 MGM DAILY ORAL
     Route: 048
     Dates: start: 19990501, end: 20090207
  2. COZAAR [Suspect]
     Dosage: 100 MGM DAILY ORAL
     Route: 048

REACTIONS (1)
  - NEOPLASM MALIGNANT [None]
